FAERS Safety Report 21529774 (Version 1)
Quarter: 2022Q4

REPORT INFORMATION
  Report Type: Spontaneous
  Country: JP (occurrence: JP)
  Receive Date: 20221031
  Receipt Date: 20221031
  Transmission Date: 20230113
  Serious: Yes (Life-Threatening, Other)
  Sender: FDA-Public Use
  Company Number: JP-NOVARTISPH-NVSJ2022JP100105

PATIENT
  Age: 83 Year
  Sex: Female
  Weight: 58 kg

DRUGS (7)
  1. DIPRIVAN [Suspect]
     Active Substance: PROPOFOL
     Indication: Anaesthesia procedure
     Dosage: 30 MG
     Route: 065
  2. XYLOCAINE [Suspect]
     Active Substance: LIDOCAINE HYDROCHLORIDE
     Indication: Anaesthesia procedure
     Dosage: 2 ML
     Route: 008
  3. FENTANYL [Concomitant]
     Active Substance: FENTANYL
     Indication: Anaesthesia procedure
     Dosage: 50 UG
     Route: 065
  4. FENTANYL [Concomitant]
     Active Substance: FENTANYL
     Dosage: 50 UG
     Route: 065
  5. FENTANYL [Concomitant]
     Active Substance: FENTANYL
     Dosage: 100 UG
     Route: 065
  6. ROCURONIUM [Concomitant]
     Active Substance: ROCURONIUM BROMIDE
     Indication: Anaesthesia procedure
     Dosage: 50 MG
     Route: 065
  7. SEVOFLURANE [Concomitant]
     Active Substance: SEVOFLURANE
     Indication: Anaesthesia procedure
     Dosage: 3 %
     Route: 065

REACTIONS (3)
  - Cardiac arrest [Recovered/Resolved]
  - Atrial fibrillation [Recovering/Resolving]
  - Concomitant disease aggravated [Recovering/Resolving]
